FAERS Safety Report 18799413 (Version 3)
Quarter: 2021Q1

REPORT INFORMATION
  Report Type: Spontaneous
  Country: US (occurrence: US)
  Receive Date: 20210128
  Receipt Date: 20210318
  Transmission Date: 20210419
  Serious: No
  Sender: FDA-Public Use
  Company Number: US-PFIZER INC-2021050029

PATIENT
  Age: 12 Year
  Sex: Male

DRUGS (2)
  1. GENOTROPIN [Suspect]
     Active Substance: SOMATROPIN
     Dosage: 1.8 MG, DAILY (SEVEN DAYS A WEEK)
     Dates: start: 20160720
  2. GENOTROPIN [Suspect]
     Active Substance: SOMATROPIN
     Indication: HORMONE LEVEL ABNORMAL
     Dosage: 2 MG, DAILY

REACTIONS (3)
  - Poor quality device used [Unknown]
  - Device information output issue [Unknown]
  - Device breakage [Unknown]
